FAERS Safety Report 4610091-0 (Version None)
Quarter: 2005Q1

REPORT INFORMATION
  Report Type: 
  Country: None (occurrence: None)
  Receive Date: 20050316
  Receipt Date: 20050304
  Transmission Date: 20050727
  Serious: Yes (Hospitalization)
  Sender: FDA-Public Use
  Company Number: FR-SANOFI-SYNTHELABO-A02200500606

PATIENT
  Age: 68 Year
  Sex: Female

DRUGS (4)
  1. PLAVIX [Suspect]
     Indication: DRUG USE FOR UNKNOWN INDICATION
     Route: 048
     Dates: start: 20040615
  2. TRIATEC [Suspect]
     Indication: DRUG USE FOR UNKNOWN INDICATION
     Route: 048
     Dates: start: 20040615
  3. FLUDEX [Suspect]
     Indication: DRUG USE FOR UNKNOWN INDICATION
     Route: 048
     Dates: start: 20040615
  4. TAHOR [Concomitant]
     Route: 048
     Dates: start: 20040715, end: 20050204

REACTIONS (4)
  - ERYTHEMA NODOSUM [None]
  - ESCHERICHIA URINARY TRACT INFECTION [None]
  - INFLAMMATION [None]
  - PRURITUS [None]
